FAERS Safety Report 9144759 (Version 1)
Quarter: 2013Q1

REPORT INFORMATION
  Report Type: Spontaneous
  Country: US (occurrence: US)
  Receive Date: 20130306
  Receipt Date: 20130306
  Transmission Date: 20140127
  Serious: No
  Sender: FDA-Public Use
  Company Number: US-ASTRAZENECA-2013SE06038

PATIENT
  Age: 79 Year
  Sex: Female
  Weight: 52.2 kg

DRUGS (4)
  1. ZESTRIL [Suspect]
     Route: 048
  2. BRILINTA [Suspect]
     Indication: PERIPHERAL ARTERIAL OCCLUSIVE DISEASE
     Route: 048
     Dates: start: 20121221
  3. PRAVASTATIN [Concomitant]
  4. MIRTAZIPINE [Concomitant]

REACTIONS (2)
  - Dyspnoea [Unknown]
  - Cold sweat [Unknown]
